FAERS Safety Report 5943666-7 (Version None)
Quarter: 2008Q4

REPORT INFORMATION
  Report Type: 
  Country: None (occurrence: None)
  Receive Date: 20081106
  Receipt Date: 20081027
  Transmission Date: 20090506
  Serious: Yes (Other)
  Sender: FDA-Public Use
  Company Number: US-JNJFOC-20081006225

PATIENT
  Sex: Female

DRUGS (5)
  1. INTELENCE [Suspect]
     Indication: HIV INFECTION
  2. PREZISTA [Suspect]
     Indication: HIV INFECTION
  3. NORVIR [Suspect]
     Indication: HIV INFECTION
  4. TRUVADA [Suspect]
     Indication: HIV INFECTION
  5. ISENTRESS [Suspect]
     Indication: HIV INFECTION

REACTIONS (3)
  - OEDEMA PERIPHERAL [None]
  - ORAL DISORDER [None]
  - RASH [None]
